FAERS Safety Report 23943584 (Version 7)
Quarter: 2025Q4

REPORT INFORMATION
  Report Type: Report from Study
  Country: GB (occurrence: GB)
  Receive Date: 20240606
  Receipt Date: 20251203
  Transmission Date: 20260117
  Serious: Yes (Other)
  Sender: TAKEDA
  Company Number: GB-TAKEDA-2024TUS056020

PATIENT
  Age: 82 Year
  Sex: Female

DRUGS (2)
  1. VEDOLIZUMAB [Suspect]
     Active Substance: VEDOLIZUMAB
     Indication: Colitis ulcerative
     Dosage: 108 MILLIGRAM, Q2WEEKS
     Dates: start: 20240710
  2. VEDOLIZUMAB [Suspect]
     Active Substance: VEDOLIZUMAB

REACTIONS (12)
  - Lower respiratory tract infection [Not Recovered/Not Resolved]
  - Colitis ulcerative [Recovering/Resolving]
  - Cataract [Unknown]
  - Lip pain [Recovered/Resolved]
  - Abdominal distension [Not Recovered/Not Resolved]
  - Cough [Not Recovered/Not Resolved]
  - Oral disorder [Unknown]
  - Fall [Recovering/Resolving]
  - Mouth ulceration [Recovering/Resolving]
  - Lip swelling [Unknown]
  - Epistaxis [Unknown]
  - Rash [Recovered/Resolved]
